FAERS Safety Report 6091151-7 (Version None)
Quarter: 2009Q1

REPORT INFORMATION
  Report Type: 
  Country: None (occurrence: None)
  Receive Date: 20090220
  Receipt Date: 20090206
  Transmission Date: 20090719
  Serious: Yes (Death)
  Sender: FDA-Public Use
  Company Number: JPI-P-005526

PATIENT
  Age: 38 Year
  Sex: Male

DRUGS (20)
  1. XYREM [Suspect]
     Indication: CATAPLEXY
     Dosage: SEE IMAGE
     Route: 048
     Dates: start: 20081001, end: 20080101
  2. XYREM [Suspect]
     Indication: NARCOLEPSY
     Dosage: SEE IMAGE
     Route: 048
     Dates: start: 20081001, end: 20080101
  3. XYREM [Suspect]
     Indication: POOR QUALITY SLEEP
     Dosage: SEE IMAGE
     Route: 048
     Dates: start: 20081001, end: 20080101
  4. XYREM [Suspect]
     Indication: CATAPLEXY
     Dosage: SEE IMAGE
     Route: 048
     Dates: start: 20080904, end: 20080922
  5. XYREM [Suspect]
     Indication: NARCOLEPSY
     Dosage: SEE IMAGE
     Route: 048
     Dates: start: 20080904, end: 20080922
  6. XYREM [Suspect]
     Indication: POOR QUALITY SLEEP
     Dosage: SEE IMAGE
     Route: 048
     Dates: start: 20080904, end: 20080922
  7. XYREM [Suspect]
     Indication: CATAPLEXY
     Dosage: SEE IMAGE
     Route: 048
     Dates: start: 20080923, end: 20081001
  8. XYREM [Suspect]
     Indication: NARCOLEPSY
     Dosage: SEE IMAGE
     Route: 048
     Dates: start: 20080923, end: 20081001
  9. XYREM [Suspect]
     Indication: POOR QUALITY SLEEP
     Dosage: SEE IMAGE
     Route: 048
     Dates: start: 20080923, end: 20081001
  10. XYREM [Suspect]
     Indication: CATAPLEXY
     Dosage: SEE IMAGE
     Route: 048
     Dates: start: 20080101, end: 20081110
  11. XYREM [Suspect]
     Indication: NARCOLEPSY
     Dosage: SEE IMAGE
     Route: 048
     Dates: start: 20080101, end: 20081110
  12. XYREM [Suspect]
     Indication: POOR QUALITY SLEEP
     Dosage: SEE IMAGE
     Route: 048
     Dates: start: 20080101, end: 20081110
  13. XYREM [Suspect]
     Indication: CATAPLEXY
     Dosage: SEE IMAGE
     Route: 048
     Dates: start: 20081111, end: 20081111
  14. XYREM [Suspect]
     Indication: NARCOLEPSY
     Dosage: SEE IMAGE
     Route: 048
     Dates: start: 20081111, end: 20081111
  15. XYREM [Suspect]
     Indication: POOR QUALITY SLEEP
     Dosage: SEE IMAGE
     Route: 048
     Dates: start: 20081111, end: 20081111
  16. MODAFINIL [Suspect]
     Indication: CATAPLEXY
     Dosage: (400 MG, 1 D)
     Dates: start: 20070101
  17. MODAFINIL [Suspect]
     Indication: NARCOLEPSY
     Dosage: (400 MG, 1 D)
     Dates: start: 20070101
  18. MODAFINIL [Suspect]
     Indication: POOR QUALITY SLEEP
     Dosage: (400 MG, 1 D)
     Dates: start: 20070101
  19. ETANERCEPT [Suspect]
     Indication: ANKYLOSING SPONDYLITIS
     Dosage: 7.1429 MG (50 MG, 1 IN 1
     Dates: start: 20060101
  20. IRBESARTAN [Concomitant]

REACTIONS (4)
  - ABDOMINAL PAIN UPPER [None]
  - CEREBROVASCULAR DISORDER [None]
  - DIARRHOEA [None]
  - HYPERHIDROSIS [None]
